FAERS Safety Report 7010417 (Version 2)
Quarter: 2014Q3

REPORT INFORMATION
  Report Type: Spontaneous
  Country: US (occurrence: None)
  Receive Date: 20090526
  Receipt Date: 20140926
  Transmission Date: 20150326
  Serious: Yes (Hospitalization, Other)
  Sender: FDA-Public Use
  Company Number: 2009S1004065

PATIENT
  Age: 82 Year
  Sex: Female
  Weight: 58.51 kg

DRUGS (5)
  1. PHOSPHO-SODA [Suspect]
     Active Substance: SODIUM PHOSPHATE, DIBASIC\SODIUM PHOSPHATE, MONOBASIC
     Indication: COLONOSCOPY
     Dosage: PO
     Route: 048
     Dates: start: 20040317, end: 20040317
  2. CALCIUM [Concomitant]
     Active Substance: CALCIUM
  3. DYAZIDE (HYDROCHLOROTHIAZIDE, TRIAMTERENE) [Concomitant]
  4. INDERAL (PROPANOLOL HYDROCHLORIDE) [Concomitant]
  5. EVISTA [Concomitant]
     Active Substance: RALOXIFENE HYDROCHLORIDE

REACTIONS (21)
  - Vomiting [None]
  - Weight decreased [None]
  - Acute phosphate nephropathy [None]
  - Renal failure acute [None]
  - Decreased appetite [None]
  - Hypocalcaemia [None]
  - Hyperphosphataemia [None]
  - Dehydration [None]
  - Hypokalaemia [None]
  - Pancytopenia [None]
  - Hypovolaemia [None]
  - Renal tubular necrosis [None]
  - Nausea [None]
  - Hyponatraemia [None]
  - Metabolic acidosis [None]
  - Urinary tract infection [None]
  - Dialysis [None]
  - Renal failure chronic [None]
  - Impaired gastric emptying [None]
  - Plasma cell myeloma [None]
  - Anaemia [None]

NARRATIVE: CASE EVENT DATE: 20040321
